FAERS Safety Report 17410502 (Version 1)
Quarter: 2020Q1

REPORT INFORMATION
  Report Type: Spontaneous
  Country: CZ (occurrence: CZ)
  Receive Date: 20200212
  Receipt Date: 20200212
  Transmission Date: 20200409
  Serious: Yes (Other)
  Sender: FDA-Public Use
  Company Number: CZ-MYLANLABS-2020M1015436

PATIENT
  Sex: Male

DRUGS (2)
  1. CISPLATIN. [Suspect]
     Active Substance: CISPLATIN
     Indication: CARCINOID TUMOUR
     Dosage: UNK
     Route: 062
     Dates: end: 200202
  2. VEPESID [Suspect]
     Active Substance: ETOPOSIDE
     Indication: CARCINOID TUMOUR
     Dosage: UNK
     Route: 062
     Dates: end: 200202

REACTIONS (8)
  - Immobile [Unknown]
  - Visual impairment [Unknown]
  - Pyrexia [Unknown]
  - Asthenia [Unknown]
  - Somnolence [Unknown]
  - Condition aggravated [Unknown]
  - Product use in unapproved indication [Unknown]
  - Fatigue [Unknown]

NARRATIVE: CASE EVENT DATE: 200203
